FAERS Safety Report 14873639 (Version 1)
Quarter: 2018Q2

REPORT INFORMATION
  Report Type: Report from Study
  Country: None (occurrence: ES)
  Receive Date: 20180510
  Receipt Date: 20180510
  Transmission Date: 20180711
  Serious: Yes (Hospitalization)
  Sender: FDA-Public Use
  Company Number: ES-ABBVIE-18K-144-2344175-00

PATIENT
  Age: 66 Year
  Sex: Male

DRUGS (1)
  1. DUODOPA [Suspect]
     Active Substance: CARBIDOPA\LEVODOPA
     Indication: PARKINSON^S DISEASE
     Route: 050
     Dates: start: 20120308

REACTIONS (9)
  - Stoma site discharge [Not Recovered/Not Resolved]
  - Device connection issue [Not Recovered/Not Resolved]
  - Device dislocation [Unknown]
  - Medical device pain [Not Recovered/Not Resolved]
  - Device breakage [Not Recovered/Not Resolved]
  - Stoma complication [Not Recovered/Not Resolved]
  - Bezoar [Recovered/Resolved]
  - Stoma site erythema [Not Recovered/Not Resolved]
  - Stoma site reaction [Not Recovered/Not Resolved]

NARRATIVE: CASE EVENT DATE: 20180427
